FAERS Safety Report 10516100 (Version 1)
Quarter: 2014Q3

REPORT INFORMATION
  Report Type: Spontaneous
  Country: US (occurrence: None)
  Receive Date: 20140929
  Receipt Date: 20140929
  Transmission Date: 20150326
  Serious: Yes (Other)
  Sender: FDA-Public Use
  Company Number: 2011SP053508

PATIENT
  Age: 76 Year
  Sex: Male

DRUGS (7)
  1. SIMVASTATIN. [Concomitant]
     Active Substance: SIMVASTATIN
  2. DOXAZOSIN MESYLATE. [Concomitant]
     Active Substance: DOXAZOSIN MESYLATE
  3. ASPRIN [Concomitant]
     Active Substance: ASPIRIN
  4. ATENOLOL. [Concomitant]
     Active Substance: ATENOLOL
  5. LEVOTHYOXINE SODIUM [Concomitant]
  6. CLARITIN [Suspect]
     Active Substance: LORATADINE
     Indication: DRUG THERAPY
     Route: 048
     Dates: start: 20111001, end: 20111015
  7. CLARITIN [Suspect]
     Active Substance: LORATADINE
     Indication: SEASONAL ALLERGY
     Route: 048
     Dates: start: 20111001, end: 20111015

REACTIONS (3)
  - Rhinorrhoea [None]
  - Condition aggravated [None]
  - Hypersensitivity [None]

NARRATIVE: CASE EVENT DATE: 201110
